FAERS Safety Report 7816998-5 (Version None)
Quarter: 2011Q4

REPORT INFORMATION
  Report Type: 
  Country: None (occurrence: None)
  Receive Date: 20111017
  Receipt Date: 20111011
  Transmission Date: 20120403
  Serious: Yes (Hospitalization, Other)
  Sender: FDA-Public Use
  Company Number: AU-ELI_LILLY_AND_COMPANY-AU201108007469

PATIENT
  Sex: Male
  Weight: 65 kg

DRUGS (4)
  1. TEMAZE [Concomitant]
  2. SUSTANON                           /01129501/ [Concomitant]
  3. VIAGRA [Concomitant]
     Dosage: UNK
     Dates: start: 20050101
  4. CIALIS [Suspect]
     Indication: ERECTILE DYSFUNCTION
     Dosage: 20 MG, PRN
     Route: 048
     Dates: start: 20081201, end: 20110101

REACTIONS (2)
  - OFF LABEL USE [None]
  - PROSTATE CANCER [None]
